FAERS Safety Report 5278457-6 (Version None)
Quarter: 2007Q1

REPORT INFORMATION
  Report Type: 
  Country: None (occurrence: None)
  Receive Date: 20070322
  Receipt Date: 20070306
  Transmission Date: 20070707
  Serious: Yes (Hospitalization)
  Sender: FDA-Public Use
  Company Number: 1-14695032

PATIENT
  Age: 69 Year
  Sex: Female
  Weight: 68 kg

DRUGS (4)
  1. SOTRADECOL [Suspect]
     Indication: SCLEROTHERAPY
     Dosage: 2ML OF 1% SOLUTION, INTRAVENOUS
     Route: 042
     Dates: start: 20070302, end: 20070302
  2. COUMADIN [Concomitant]
  3. ACTONEL [Concomitant]
  4. CARDIZEM CD [Concomitant]

REACTIONS (4)
  - ANAPHYLACTIC SHOCK [None]
  - DYSGEUSIA [None]
  - HEADACHE [None]
  - HYPERSENSITIVITY [None]
